FAERS Safety Report 9157311 (Version 1)
Quarter: 2013Q1

REPORT INFORMATION
  Report Type: Not Available
  Country: FR (occurrence: FR)
  Receive Date: 20130312
  Receipt Date: 20130312
  Transmission Date: 20140127
  Serious: Yes (Hospitalization)
  Sender: FDA-Public Use
  Company Number: FR-ASTELLAS-2013EU002196

PATIENT
  Age: 55 Year
  Sex: Female

DRUGS (9)
  1. PROGRAF [Suspect]
     Dosage: 6.5 MG, BID
     Route: 048
     Dates: start: 201211
  2. PROGRAF [Suspect]
     Dosage: 6.5 MG, UNKNOWN/D
     Route: 048
     Dates: start: 20130208
  3. PROGRAF [Suspect]
     Dosage: 4.5 MG, UNKNOWN/D
     Route: 048
     Dates: start: 20130211
  4. CELLCEPT                           /01275102/ [Concomitant]
     Dosage: UNK
     Route: 065
  5. CORTANCYL [Concomitant]
     Dosage: 5 MG, UID/QD
     Route: 065
  6. BACTRIM [Concomitant]
     Dosage: UNK
     Route: 065
  7. MYFORTIC [Concomitant]
     Dosage: 360 MG, BID
     Route: 065
  8. ASPEGIC /00002703/ [Concomitant]
     Dosage: 100 MG, UNKNOWN/D
     Route: 065
  9. TEMERIT [Concomitant]
     Dosage: 5 MG, UID/QD
     Route: 065

REACTIONS (2)
  - Hypothermia [Recovered/Resolved]
  - General physical health deterioration [Recovered/Resolved]
